FAERS Safety Report 16105240 (Version 2)
Quarter: 2019Q2

REPORT INFORMATION
  Report Type: Spontaneous
  Country: GB (occurrence: GB)
  Receive Date: 20190322
  Receipt Date: 20190410
  Transmission Date: 20190711
  Serious: Yes (Other)
  Sender: FDA-Public Use
  Company Number: PHHY2019GB059613

PATIENT
  Age: 81 Year
  Sex: Male

DRUGS (2)
  1. ZOLEDRONIC ACID [Suspect]
     Active Substance: ZOLEDRONIC ACID
     Indication: METASTASES TO BONE
     Dosage: 4 MG, UNK
     Route: 042
  2. ZOLEDRONIC ACID [Suspect]
     Active Substance: ZOLEDRONIC ACID
     Indication: PROSTATE CANCER

REACTIONS (5)
  - Oral cavity fistula [Recovered/Resolved]
  - Renal impairment [Unknown]
  - Blood creatinine abnormal [Unknown]
  - Fistula discharge [Recovered/Resolved]
  - Osteonecrosis of jaw [Recovering/Resolving]
